FAERS Safety Report 10350973 (Version 1)
Quarter: 2014Q3

REPORT INFORMATION
  Report Type: Spontaneous
  Country: NL (occurrence: NL)
  Receive Date: 20140730
  Receipt Date: 20140730
  Transmission Date: 20150326
  Serious: Yes (Other)
  Sender: FDA-Public Use
  Company Number: NL-WATSON-2014-16156

PATIENT
  Age: 63 Year
  Sex: Male

DRUGS (1)
  1. METRONIDAZOLE. [Suspect]
     Active Substance: METRONIDAZOLE
     Indication: INFECTION PARASITIC
     Dosage: 750 MG, TID; 3 KEER PER DAG 1.5 STUK(S) (THREE TIMES DAILY 1.5 UNIT (S))
     Route: 048
     Dates: start: 20140523, end: 20140525

REACTIONS (2)
  - Dizziness [Recovered/Resolved]
  - Coordination abnormal [Recovered/Resolved]

NARRATIVE: CASE EVENT DATE: 20140523
